FAERS Safety Report 10064610 (Version 3)
Quarter: 2015Q2

REPORT INFORMATION
  Report Type: Spontaneous
  Country: US (occurrence: US)
  Receive Date: 20140408
  Receipt Date: 20150521
  Transmission Date: 20150821
  Serious: Yes (Death, Life-Threatening, Hospitalization, Other)
  Sender: FDA-Public Use
  Company Number: US-MERCK-1404USA003878

PATIENT
  Sex: Male
  Weight: 133.79 kg

DRUGS (1)
  1. JANUVIA [Suspect]
     Active Substance: SITAGLIPTIN PHOSPHATE
     Indication: TYPE 2 DIABETES MELLITUS
     Dosage: 50 MG, QD
     Route: 048
     Dates: start: 20100318, end: 20120608

REACTIONS (9)
  - Metastases to liver [Unknown]
  - Pancreatic stent placement [Unknown]
  - Biopsy pancreas [Unknown]
  - Hypertension [Unknown]
  - Diabetes mellitus inadequate control [Unknown]
  - Benign prostatic hyperplasia [Unknown]
  - Hypertension [Unknown]
  - Adenocarcinoma pancreas [Fatal]
  - Metastases to lymph nodes [Unknown]

NARRATIVE: CASE EVENT DATE: 201205
